FAERS Safety Report 11614227 (Version 1)
Quarter: 2015Q4

REPORT INFORMATION
  Report Type: Spontaneous
  Country: US (occurrence: US)
  Receive Date: 20151008
  Receipt Date: 20151008
  Transmission Date: 20160304
  Serious: Yes (Hospitalization)
  Sender: FDA-Public Use
  Company Number: US-JNJFOC-20151000302

PATIENT
  Age: 53 Year
  Sex: Female
  Weight: 77.11 kg

DRUGS (14)
  1. BENTYL [Concomitant]
     Active Substance: DICYCLOMINE HYDROCHLORIDE
     Indication: MUSCLE SPASMS
     Route: 048
     Dates: start: 1995
  2. METHADONE [Concomitant]
     Active Substance: METHADONE HYDROCHLORIDE
     Indication: CROHN^S DISEASE
     Route: 065
     Dates: start: 2014
  3. REMICADE [Suspect]
     Active Substance: INFLIXIMAB
     Indication: CROHN^S DISEASE
     Route: 042
     Dates: start: 2003
  4. FLAGYL [Concomitant]
     Active Substance: METRONIDAZOLE\METRONIDAZOLE HYDROCHLORIDE
     Indication: GASTRITIS
     Dosage: EVERY 8 HOURS AS NEEDED
     Route: 048
     Dates: start: 2005
  5. METHADONE [Concomitant]
     Active Substance: METHADONE HYDROCHLORIDE
     Indication: FIBROMYALGIA
     Route: 065
     Dates: start: 2014
  6. NEXIUM [Concomitant]
     Active Substance: ESOMEPRAZOLE MAGNESIUM
     Indication: DYSPEPSIA
     Route: 048
     Dates: start: 2010
  7. REMICADE [Suspect]
     Active Substance: INFLIXIMAB
     Indication: CROHN^S DISEASE
     Route: 042
     Dates: start: 20150921
  8. PHENERGAN [Concomitant]
     Active Substance: PROMETHAZINE HYDROCHLORIDE
     Indication: NAUSEA
     Route: 048
     Dates: start: 1995
  9. REMICADE [Suspect]
     Active Substance: INFLIXIMAB
     Indication: RHEUMATOID ARTHRITIS
     Route: 042
     Dates: start: 20150727
  10. REMICADE [Suspect]
     Active Substance: INFLIXIMAB
     Indication: RHEUMATOID ARTHRITIS
     Route: 042
     Dates: start: 2003
  11. REMICADE [Suspect]
     Active Substance: INFLIXIMAB
     Indication: RHEUMATOID ARTHRITIS
     Route: 042
     Dates: start: 20150921
  12. REMICADE [Suspect]
     Active Substance: INFLIXIMAB
     Indication: CROHN^S DISEASE
     Route: 042
     Dates: start: 20150727
  13. PROAIR HFA [Concomitant]
     Active Substance: ALBUTEROL SULFATE
     Route: 065
     Dates: start: 2013
  14. VITAMIN B12 [Concomitant]
     Active Substance: CYANOCOBALAMIN
     Route: 058
     Dates: start: 2013

REACTIONS (11)
  - Abasia [Recovered/Resolved]
  - Fatigue [Not Recovered/Not Resolved]
  - Gastritis [Not Recovered/Not Resolved]
  - Urticaria [Unknown]
  - Sinusitis [Recovered/Resolved]
  - Generalised erythema [Recovered/Resolved]
  - Limb discomfort [Recovered/Resolved]
  - Hypoaesthesia [Not Recovered/Not Resolved]
  - Pyrexia [Recovered/Resolved]
  - Infusion related reaction [Unknown]
  - Condition aggravated [Unknown]

NARRATIVE: CASE EVENT DATE: 2015
